FAERS Safety Report 7209808-0 (Version None)
Quarter: 2011Q1

REPORT INFORMATION
  Report Type: 
  Country: None (occurrence: None)
  Receive Date: 20110104
  Receipt Date: 20101229
  Transmission Date: 20110831
  Serious: Yes (Hospitalization)
  Sender: FDA-Public Use
  Company Number: JP-MERCK-1002USA02416

PATIENT
  Age: 81 Year
  Sex: Female

DRUGS (2)
  1. SELARA [Suspect]
     Indication: HYPERTENSION
     Route: 048
  2. HYZAAR [Suspect]
     Indication: HYPERTENSION
     Route: 048

REACTIONS (1)
  - LACUNAR INFARCTION [None]
